FAERS Safety Report 22163649 (Version 1)
Quarter: 2023Q2

REPORT INFORMATION
  Report Type: Spontaneous
  Country: US (occurrence: US)
  Receive Date: 20230401
  Receipt Date: 20230401
  Transmission Date: 20230721
  Serious: No
  Sender: FDA-Public Use
  Company Number: US-THEA-2022001035

PATIENT
  Sex: Female

DRUGS (4)
  1. COSOPT PF [Suspect]
     Active Substance: DORZOLAMIDE HYDROCHLORIDE\TIMOLOL MALEATE
     Indication: Prophylaxis against transplant rejection
     Dosage: 1 DROP INTO THE RIGHT EYE, 2 TIMES DAILY.
     Route: 047
     Dates: end: 20220720
  2. TIMOLOL [Concomitant]
     Active Substance: TIMOLOL
  3. Pred Forte eye drops [Concomitant]
  4. ZIOPTAN [Concomitant]
     Active Substance: TAFLUPROST

REACTIONS (3)
  - Eye swelling [Unknown]
  - Ocular hyperaemia [Unknown]
  - Lacrimation increased [Unknown]
